FAERS Safety Report 22136828 (Version 1)
Quarter: 2023Q1

REPORT INFORMATION
  Report Type: Spontaneous
  Country: CH (occurrence: CH)
  Receive Date: 20230324
  Receipt Date: 20230324
  Transmission Date: 20230417
  Serious: Yes (Death, Hospitalization, Other)
  Sender: FDA-Public Use
  Company Number: CH-SM-2023-10701

PATIENT
  Age: 51 Year
  Sex: Female

DRUGS (21)
  1. TOPAMAX [Suspect]
     Active Substance: TOPIRAMATE
     Indication: Product used for unknown indication
     Dosage: TOPAMAX (TOPIRAMAT) 100 MG-75 MG- 75 MG,  WHS. PAUSIERT BEREITS AM 05.01.2023 (GEMASS MELDE-FORMU...
     Route: 048
     Dates: end: 20230105
  2. FENTANYL [Suspect]
     Active Substance: FENTANYL
     Indication: Product used for unknown indication
     Route: 065
     Dates: start: 20230103
  3. ROCEPHIN [Suspect]
     Active Substance: CEFTRIAXONE SODIUM
     Indication: Product used for unknown indication
     Dosage: ROCEPHIN (CEFTRIAXON) 2 G I.V.: 30.12.22 BIS 02.01.23 (GEMASS MELDE-FORMULAR), AB DANN WHS. BEREI...
     Route: 042
     Dates: start: 20221230, end: 20230102
  4. ROCEPHIN [Suspect]
     Active Substance: CEFTRIAXONE SODIUM
     Dosage: ROCEPHIN (CEFTRIAXON) 2 G I.V.: 30.12.22 BIS 02.01.23 (GEMASS MELDE-FORMULAR), AB DANN WHS. BEREI...
     Route: 042
     Dates: start: 20230116, end: 20230118
  5. LAMICTAL [Suspect]
     Active Substance: LAMOTRIGINE
     Indication: Product used for unknown indication
     Dosage: -LAMICTAL (LAMOTRIGIN) 150 MG- 50 MG- 125 MG
     Route: 065
  6. VALPROATE SODIUM [Suspect]
     Active Substance: VALPROATE SODIUM
     Indication: Product used for unknown indication
     Dosage: ORFIRIL (VALPROINSAURE) 300MG- 150 MG -300 MG
     Route: 065
  7. PIPERACILLIN SODIUM\TAZOBACTAM SODIUM [Suspect]
     Active Substance: PIPERACILLIN SODIUM\TAZOBACTAM SODIUM
     Indication: Product used for unknown indication
     Route: 065
     Dates: start: 20230102
  8. ACETAMINOPHEN [Suspect]
     Active Substance: ACETAMINOPHEN
     Indication: Product used for unknown indication
     Dosage: PARACETAMOL SINTETICA IV. AB 30.12.22 BIS 16.01.23, DAFALGAN BRAUSETABL. AB 16.01.2023
     Route: 065
     Dates: end: 20230116
  9. ACETAMINOPHEN [Suspect]
     Active Substance: ACETAMINOPHEN
     Dosage: PARACETAMOL SINTETICA IV. AB 30.12.22 BIS 16.01.23, DAFALGAN BRAUSETABL. AB 16.01.2023
     Route: 065
     Dates: start: 20230116
  10. METAMIZOLE [Suspect]
     Active Substance: METAMIZOLE
     Indication: Product used for unknown indication
     Route: 065
     Dates: start: 20221230
  11. MIDAZOLAM [Suspect]
     Active Substance: MIDAZOLAM
     Indication: Product used for unknown indication
     Route: 065
     Dates: start: 20221230
  12. HEPARIN [Suspect]
     Active Substance: HEPARIN SODIUM
     Indication: Product used for unknown indication
     Route: 065
     Dates: start: 20221230
  13. INSULIN ASPART\INSULIN DEGLUDEC [Suspect]
     Active Substance: INSULIN ASPART\INSULIN DEGLUDEC
     Dates: start: 20221230
  14. NOREPINEPHRINE HYDROCHLORIDE, (+/-)- [Suspect]
     Active Substance: NOREPINEPHRINE HYDROCHLORIDE, (+/-)-
     Indication: Product used for unknown indication
     Route: 065
     Dates: start: 20221230
  15. METOCLOPRAMIDE HYDROCHLORIDE [Suspect]
     Active Substance: METOCLOPRAMIDE HYDROCHLORIDE
     Indication: Product used for unknown indication
     Route: 065
     Dates: end: 20230120
  16. CEFEPIME [Concomitant]
     Active Substance: CEFEPIME HYDROCHLORIDE
     Indication: Product used for unknown indication
     Dosage: CEFEPIM ORPHA 2 G I.V.: 01.01.23 BIS 02.01.23 (GEMASS MELDE-FORMULAR), AB DANN WHS. BEREITS PAUSI...
     Route: 065
     Dates: start: 20230101, end: 20230102
  17. GENTAMICIN [Concomitant]
     Active Substance: GENTAMICIN
     Dosage: IN TOTAL
     Dates: start: 20230102, end: 20230102
  18. DEXKETOPROFEN TROMETAMOL [Concomitant]
     Active Substance: DEXKETOPROFEN TROMETAMOL
     Dosage: DEXKETOPROFEN (KETESSE) 150 MG I.V. 30.12.22 BIS 01.01.23 (GEMASS MELDE-FORMULAR), AB DANN WHS. B...
     Route: 042
     Dates: start: 20221230, end: 20230101
  19. PROPOFOL [Concomitant]
     Active Substance: PROPOFOL
     Dosage: PROPOFOL AM 30.12.23 (GEMASS MELDE-FORMULAR), AUF VORHANDENER MEDIKAMENTENLISTE NICHT ENTHALTEN
     Dates: start: 20221230, end: 20221230
  20. KETAMINE HYDROCHLORIDE [Concomitant]
     Active Substance: KETAMINE HYDROCHLORIDE
     Dates: start: 20221230, end: 20221230
  21. REMIFENTANIL HYDROCHLORIDE [Concomitant]
     Active Substance: REMIFENTANIL HYDROCHLORIDE
     Dates: start: 20221230, end: 20221230

REACTIONS (2)
  - Pyrexia [Fatal]
  - Rhabdomyolysis [Recovering/Resolving]

NARRATIVE: CASE EVENT DATE: 20221230
